FAERS Safety Report 4939357-1 (Version None)
Quarter: 2006Q1

REPORT INFORMATION
  Report Type: 
  Country: None (occurrence: None)
  Receive Date: 20060306
  Receipt Date: 20060222
  Transmission Date: 20060701
  Serious: Yes (Death, Hospitalization)
  Sender: FDA-Public Use
  Company Number: FR200602004207

PATIENT
  Age: 85 Year
  Sex: Male

DRUGS (9)
  1. ZYPREXA [Suspect]
     Dosage: 5 MG, DAILY (1/D), ORAL
     Route: 048
     Dates: start: 20040415, end: 20060123
  2. EQUANIL [Concomitant]
  3. THERALENE (ALIMEMAZINE TARTRATE) [Concomitant]
  4. TIAPRIDAL (TIAPRIDE) [Concomitant]
  5. PREVISCAN (FLUINDIONE) [Concomitant]
  6. CORVASAL (MOLSIDOMINE) [Concomitant]
  7. DIAMICRON /NET/ (GLICLAZIDE) [Concomitant]
  8. AMLODIPINE BESYLATE [Concomitant]
  9. MERONIZINE (ACEPROMETAZINE, MEPROBAMATE) [Concomitant]

REACTIONS (5)
  - CEREBRAL ATROPHY [None]
  - DYSPHAGIA [None]
  - ISCHAEMIC STROKE [None]
  - PNEUMONIA ASPIRATION [None]
  - RESPIRATORY ARREST [None]
